FAERS Safety Report 4973997-9 (Version None)
Quarter: 2006Q2

REPORT INFORMATION
  Report Type: 
  Country: None (occurrence: None)
  Receive Date: 20060417
  Receipt Date: 20060314
  Transmission Date: 20061013
  Serious: Yes (Death)
  Sender: FDA-Public Use
  Company Number: GB-BRISTOL-MYERS SQUIBB COMPANY-13314919

PATIENT
  Age: 49 Year
  Sex: Female
  Weight: 76 kg

DRUGS (8)
  1. PLATINEX [Suspect]
     Indication: CERVIX CARCINOMA
     Dates: start: 20050614
  2. RADIOTHERAPY [Concomitant]
     Indication: CERVIX CARCINOMA
  3. FLUOXETINE HCL [Concomitant]
     Route: 048
  4. GABAPENTIN [Concomitant]
     Route: 048
  5. LANSOPRAZOLE [Concomitant]
     Route: 048
  6. DALTEPARIN [Concomitant]
     Route: 058
  7. IPRATROPIUM BROMIDE [Concomitant]
  8. SALBUTAMOL [Concomitant]

REACTIONS (2)
  - CARDIAC FAILURE CONGESTIVE [None]
  - CONGESTIVE CARDIOMYOPATHY [None]
